FAERS Safety Report 9336492 (Version 2)
Quarter: 2013Q3

REPORT INFORMATION
  Report Type: Spontaneous
  Country: US (occurrence: US)
  Receive Date: 20130607
  Receipt Date: 20130703
  Transmission Date: 20140515
  Serious: No
  Sender: FDA-Public Use
  Company Number: US-PFIZER INC-2013169099

PATIENT
  Age: 5 Decade
  Sex: Female
  Weight: 56.7 kg

DRUGS (4)
  1. PREMARIN [Suspect]
     Indication: PROPHYLAXIS URINARY TRACT INFECTION
     Dosage: UNK
     Route: 067
  2. PREMARIN [Suspect]
     Dosage: 0.5 MG, WEEKLY
     Route: 067
  3. ATENOLOL [Concomitant]
     Indication: BLOOD PRESSURE ABNORMAL
     Dosage: 12.5 MG, 1X/DAY
  4. FELODIPINE [Concomitant]
     Indication: BLOOD PRESSURE ABNORMAL
     Dosage: 2.5 MG, 1X/DAY

REACTIONS (2)
  - Hypersensitivity [Recovered/Resolved]
  - Nausea [Recovered/Resolved]
